FAERS Safety Report 5840211-1 (Version None)
Quarter: 2008Q3

REPORT INFORMATION
  Report Type: 
  Country: None (occurrence: None)
  Receive Date: 20080811
  Receipt Date: 20080729
  Transmission Date: 20090109
  Serious: Yes (Hospitalization)
  Sender: FDA-Public Use
  Company Number: US-ELI_LILLY_AND_COMPANY-US200807006312

PATIENT
  Age: 79 Year
  Sex: Male

DRUGS (1)
  1. GEMZAR [Suspect]
     Indication: NON-SMALL CELL LUNG CANCER
     Dosage: 925 MG, UNK

REACTIONS (3)
  - BLOOD CREATININE ABNORMAL [None]
  - GASTROINTESTINAL TOXICITY [None]
  - PANCYTOPENIA [None]
